FAERS Safety Report 11631384 (Version 1)
Quarter: 2015Q4

REPORT INFORMATION
  Report Type: Other
  Country: GB (occurrence: GB)
  Receive Date: 20151014
  Receipt Date: 20151014
  Transmission Date: 20160304
  Serious: Yes (Disabling)
  Sender: FDA-Public Use
  Company Number: GB-GLENMARK PHARMACEUTICALS INC, USA.-2014GMK011710

PATIENT
  Age: 78 Year
  Sex: Male
  Weight: 82.55 kg

DRUGS (9)
  1. OMEPRAZOLE. [Concomitant]
     Active Substance: OMEPRAZOLE
     Dosage: UNK
  2. GABAPENTIN. [Suspect]
     Active Substance: GABAPENTIN
     Dosage: 300 MG, TID
     Route: 048
     Dates: end: 20140721
  3. AMLODIPINE [Concomitant]
     Active Substance: AMLODIPINE BESYLATE
     Dosage: UNK
  4. ATORVASTATIN [Concomitant]
     Active Substance: ATORVASTATIN
     Dosage: UNK
  5. LISINOPRIL. [Concomitant]
     Active Substance: LISINOPRIL
     Dosage: UNK
  6. TRAMADOL. [Concomitant]
     Active Substance: TRAMADOL
     Dosage: UNK
  7. GABAPENTIN. [Suspect]
     Active Substance: GABAPENTIN
     Dosage: 900 MG, TID
     Route: 048
     Dates: start: 20140707
  8. VOLTAROL [Concomitant]
     Active Substance: DICLOFENAC SODIUM
     Dosage: UNK
  9. PARACETAMOL [Concomitant]
     Active Substance: ACETAMINOPHEN
     Dosage: UNK

REACTIONS (3)
  - Joint stiffness [Not Recovered/Not Resolved]
  - Peripheral swelling [Unknown]
  - Joint swelling [Not Recovered/Not Resolved]

NARRATIVE: CASE EVENT DATE: 20140707
